FAERS Safety Report 21690002 (Version 1)
Quarter: 2022Q4

REPORT INFORMATION
  Report Type: Report from Study
  Country: US (occurrence: US)
  Receive Date: 20221206
  Receipt Date: 20221206
  Transmission Date: 20230113
  Serious: No
  Sender: FDA-Public Use
  Company Number: US-002147023-NVSC2022US282769

PATIENT
  Age: 53 Year
  Sex: Female

DRUGS (1)
  1. LEQVIO [Suspect]
     Active Substance: INCLISIRAN SODIUM
     Indication: Hypercholesterolaemia
     Dosage: 1 DOSAGE FORM
     Route: 058
     Dates: start: 20221013

REACTIONS (3)
  - Pruritus [Unknown]
  - Heart rate increased [Unknown]
  - Injection site pain [Unknown]
